FAERS Safety Report 5375549-8 (Version None)
Quarter: 2007Q2

REPORT INFORMATION
  Report Type: 
  Country: None (occurrence: None)
  Receive Date: 20070629
  Receipt Date: 20070615
  Transmission Date: 20071010
  Serious: Yes (Other)
  Sender: FDA-Public Use
  Company Number: CH-GENENTECH-234129

PATIENT
  Sex: Male

DRUGS (4)
  1. RAPTIVA [Suspect]
     Indication: PSORIASIS
     Dosage: 0.75 ML, UNK
     Dates: start: 20051116, end: 20060228
  2. SEROPRAM [Concomitant]
     Indication: DEPRESSION
     Dosage: 2 UNK, QD
  3. DOLIPRANE [Concomitant]
     Indication: HEADACHE
     Dosage: UNK, PRN
  4. TEGRETOL [Concomitant]
     Indication: EPILEPSY

REACTIONS (2)
  - ASTHENIA [None]
  - EPILEPSY [None]
